FAERS Safety Report 5651072-8 (Version None)
Quarter: 2008Q1

REPORT INFORMATION
  Report Type: 
  Country: None (occurrence: None)
  Receive Date: 20080305
  Receipt Date: 20080304
  Transmission Date: 20080703
  Serious: Yes (Hospitalization)
  Sender: FDA-Public Use
  Company Number: B0508970A

PATIENT
  Age: 64 Year
  Sex: Female
  Weight: 66.8 kg

DRUGS (2)
  1. LAPATINIB [Suspect]
     Indication: BREAST CANCER METASTATIC
     Dosage: 1250MG PER DAY
     Route: 048
     Dates: start: 20071207, end: 20080207
  2. CAPECITABINE [Suspect]
     Indication: BREAST CANCER METASTATIC
     Dosage: 1650MG PER DAY
     Route: 048
     Dates: start: 20071207, end: 20080201

REACTIONS (13)
  - ANOREXIA [None]
  - ASTHENIA [None]
  - BLOOD TEST ABNORMAL [None]
  - BODY TEMPERATURE INCREASED [None]
  - GENERAL PHYSICAL HEALTH DETERIORATION [None]
  - ILL-DEFINED DISORDER [None]
  - LETHARGY [None]
  - MOUTH HAEMORRHAGE [None]
  - NEUTROPENIA [None]
  - ORAL INTAKE REDUCED [None]
  - ORAL PAIN [None]
  - STOMATITIS [None]
  - WHITE BLOOD CELL COUNT DECREASED [None]
